FAERS Safety Report 18575718 (Version 2)
Quarter: 2020Q4

REPORT INFORMATION
  Report Type: Report from Study
  Country: KR (occurrence: KR)
  Receive Date: 20201203
  Receipt Date: 20201224
  Transmission Date: 20210114
  Serious: No
  Sender: FDA-Public Use
  Company Number: KR-CELGENEUS-KOR-20201107625

PATIENT
  Age: 78 Year
  Sex: Male
  Weight: 59 kg

DRUGS (7)
  1. FEDRATINIB [Suspect]
     Active Substance: FEDRATINIB
     Dosage: 300 MG X 1 X 1 DAYS
     Route: 048
     Dates: start: 20200423
  2. CHLORPHENIRAMINE MALEATE. [Concomitant]
     Active Substance: CHLORPHENIRAMINE MALEATE
     Indication: PREMEDICATION
     Dosage: 4 MG X ONCE
     Route: 042
     Dates: start: 20201119, end: 20201119
  3. FEDRATINIB [Suspect]
     Active Substance: FEDRATINIB
     Indication: PRIMARY MYELOFIBROSIS
     Dosage: 400 MG X 1 X 1 DAYS
     Route: 048
     Dates: start: 20200117, end: 20200415
  4. DESMOPRESSIN [Concomitant]
     Active Substance: DESMOPRESSIN
     Indication: BENIGN PROSTATIC HYPERPLASIA
     Dosage: 0.1 MG X 1 X 1 DAYS
     Route: 048
     Dates: start: 20191007
  5. MEMANTINE. [Concomitant]
     Active Substance: MEMANTINE
     Indication: PROPHYLAXIS
     Dosage: 10 MG X 1 X 1 DAYS
     Route: 048
     Dates: start: 20190828
  6. VESICARE [Concomitant]
     Active Substance: SOLIFENACIN SUCCINATE
     Indication: BENIGN PROSTATIC HYPERPLASIA
     Dosage: 5 MG X 2 X 1 DAYS
     Route: 048
     Dates: start: 20200615
  7. DEFERASIROX. [Concomitant]
     Active Substance: DEFERASIROX
     Indication: HAEMOSIDEROSIS
     Dosage: 180 MG X 1 X 1 DAYS
     Route: 048
     Dates: start: 20190214

REACTIONS (1)
  - Vitamin B1 decreased [Not Recovered/Not Resolved]

NARRATIVE: CASE EVENT DATE: 20201119
